FAERS Safety Report 15981456 (Version 1)
Quarter: 2019Q1

REPORT INFORMATION
  Report Type: Spontaneous
  Country: US (occurrence: US)
  Receive Date: 20190219
  Receipt Date: 20190219
  Transmission Date: 20190418
  Serious: No
  Sender: FDA-Public Use
  Company Number: US-CELGENEUS-USA-20190204638

PATIENT
  Age: 58 Year
  Sex: Female

DRUGS (2)
  1. OTEZLA [Suspect]
     Active Substance: APREMILAST
     Dosage: 60 MILLIGRAM
     Route: 048
     Dates: start: 201902
  2. OTEZLA [Suspect]
     Active Substance: APREMILAST
     Indication: PSORIASIS
     Dosage: 20MG DAY 3, 20MG DAY 4
     Route: 048
     Dates: start: 20190211

REACTIONS (3)
  - Dyspnoea [Unknown]
  - Dizziness [Unknown]
  - Bone pain [Unknown]

NARRATIVE: CASE EVENT DATE: 20190214
